FAERS Safety Report 15109917 (Version 4)
Quarter: 2019Q4

REPORT INFORMATION
  Report Type: Report from Study
  Country: BE (occurrence: BE)
  Receive Date: 20180705
  Receipt Date: 20191126
  Transmission Date: 20200122
  Serious: Yes (Other)
  Sender: FDA-Public Use
  Company Number: BE-PFIZER INC-2018264996

PATIENT
  Sex: Female
  Weight: 78.7 kg

DRUGS (12)
  1. CARBOPLATIN. [Suspect]
     Active Substance: CARBOPLATIN
     Dosage: 2.7 AUC, WEEKLY
     Route: 042
     Dates: start: 20160623
  2. PACLITAXEL. [Suspect]
     Active Substance: PACLITAXEL
     Dosage: 45 MG/M2, WEEKLY
     Route: 042
     Dates: start: 20160623
  3. INDAPAMIDE/PERINDOPRIL [Concomitant]
     Active Substance: INDAPAMIDE\PERINDOPRIL
     Dates: start: 2013
  4. BREXINE [Suspect]
     Active Substance: PIROXICAM BETADEX
     Indication: PAIN IN EXTREMITY
     Dosage: UNK
     Route: 065
     Dates: start: 201611, end: 201612
  5. PACLITAXEL. [Suspect]
     Active Substance: PACLITAXEL
     Dosage: UNK, WEEKLY
     Route: 042
     Dates: start: 20160927
  6. PRAVASTATIN. [Concomitant]
     Active Substance: PRAVASTATIN
     Dates: start: 2013
  7. CARBOPLATIN. [Suspect]
     Active Substance: CARBOPLATIN
     Dosage: UNK, WEEKLY
     Route: 042
     Dates: start: 20160927
  8. CARBOPLATIN. [Suspect]
     Active Substance: CARBOPLATIN
     Indication: OVARIAN CANCER
     Dosage: 2.7 AUC, WEEKLY
     Route: 042
     Dates: start: 20160603
  9. BEVACIZUMAB. [Suspect]
     Active Substance: BEVACIZUMAB
     Indication: OVARIAN CANCER
     Dosage: 1166 MG, EVERY 3 WEEKS
     Route: 042
     Dates: start: 20160830
  10. PACLITAXEL. [Suspect]
     Active Substance: PACLITAXEL
     Indication: OVARIAN CANCER
     Dosage: 60 MG/M2, WEEKLY
     Route: 042
     Dates: start: 20160603
  11. ACTONEL [Concomitant]
     Active Substance: RISEDRONATE SODIUM
     Dates: start: 2012
  12. L-THYROXINE /00068001/ [Concomitant]
     Active Substance: LEVOTHYROXINE
     Dates: start: 1992

REACTIONS (21)
  - Anaemia [Recovered/Resolved]
  - Hypertension [Recovered/Resolved]
  - Musculoskeletal stiffness [Not Recovered/Not Resolved]
  - Hypertension [Not Recovered/Not Resolved]
  - Nasopharyngitis [Recovered/Resolved]
  - Sinus bradycardia [Recovered/Resolved]
  - Oedema peripheral [Not Recovered/Not Resolved]
  - Sinus bradycardia [Not Recovered/Not Resolved]
  - Muscle rupture [Not Recovered/Not Resolved]
  - Dysgeusia [Recovered/Resolved]
  - Epistaxis [Recovered/Resolved]
  - Muscle rupture [Recovered/Resolved]
  - Dysphonia [Not Recovered/Not Resolved]
  - Vertigo [Recovered/Resolved]
  - Neutropenia [Not Recovered/Not Resolved]
  - Arthralgia [Not Recovered/Not Resolved]
  - Lacrimation increased [Recovered/Resolved]
  - Neutropenia [Recovered/Resolved]
  - Oedema peripheral [Recovered/Resolved]
  - Urge incontinence [Not Recovered/Not Resolved]
  - Rhinorrhoea [Recovered/Resolved]

NARRATIVE: CASE EVENT DATE: 20160615
